FAERS Safety Report 11186397 (Version 2)
Quarter: 2015Q3

REPORT INFORMATION
  Report Type: Spontaneous
  Country: US (occurrence: US)
  Receive Date: 20150613
  Receipt Date: 20150731
  Transmission Date: 20151125
  Serious: Yes (Hospitalization)
  Sender: FDA-Public Use
  Company Number: US-BIOGENIDEC-2015BI080359

PATIENT
  Age: 43 Year
  Sex: Male

DRUGS (1)
  1. AVONEX [Suspect]
     Active Substance: INTERFERON BETA-1A
     Indication: MULTIPLE SCLEROSIS
     Route: 030
     Dates: start: 20040216, end: 20050701

REACTIONS (10)
  - Multiple sclerosis [Unknown]
  - Influenza like illness [Recovered/Resolved]
  - Nerve injury [Unknown]
  - Injury associated with device [Unknown]
  - Hyperhidrosis [Recovered/Resolved]
  - Injection site bruising [Unknown]
  - Limb operation [Unknown]
  - Memory impairment [Not Recovered/Not Resolved]
  - Malaise [Recovered/Resolved]
  - Slow speech [Not Recovered/Not Resolved]

NARRATIVE: CASE EVENT DATE: 2005
